FAERS Safety Report 21551584 (Version 1)
Quarter: 2022Q4

REPORT INFORMATION
  Report Type: Spontaneous
  Country: US (occurrence: US)
  Receive Date: 20221104
  Receipt Date: 20221104
  Transmission Date: 20230113
  Serious: Yes (Other)
  Sender: FDA-Public Use
  Company Number: US-BRISTOL-MYERS SQUIBB COMPANY-2022-132277

PATIENT
  Age: 77 Year
  Sex: Female

DRUGS (1)
  1. REVLIMID [Suspect]
     Active Substance: LENALIDOMIDE
     Indication: Product used for unknown indication
     Dosage: FOR 21 DAYS THEN OFF FOR 7 DAYS
     Route: 048
     Dates: start: 20220427

REACTIONS (5)
  - Asthenia [Unknown]
  - Diarrhoea [Unknown]
  - Macular degeneration [Unknown]
  - Decreased appetite [Unknown]
  - Depression [Unknown]
